FAERS Safety Report 6621917-3 (Version None)
Quarter: 2010Q1

REPORT INFORMATION
  Report Type: 
  Country: None (occurrence: None)
  Receive Date: 20100303
  Receipt Date: 20100224
  Transmission Date: 20100710
  Serious: Yes (Death, Life-Threatening, Other)
  Sender: FDA-Public Use
  Company Number: 2010SP012196

PATIENT
  Age: 17 Year
  Sex: Male

DRUGS (2)
  1. CORICIDIN [Suspect]
     Indication: DRUG USE FOR UNKNOWN INDICATION
     Dosage: 32 MG; PO
     Route: 048
     Dates: start: 20100207
  2. METHADONE HCL [Suspect]
     Indication: DRUG USE FOR UNKNOWN INDICATION

REACTIONS (1)
  - OVERDOSE [None]
